FAERS Safety Report 19725601 (Version 1)
Quarter: 2021Q3

REPORT INFORMATION
  Report Type: Spontaneous
  Country: US (occurrence: US)
  Receive Date: 20210819
  Receipt Date: 20210819
  Transmission Date: 20211014
  Serious: No
  Sender: FDA-Public Use
  Company Number: US-THERAPEUTICSMD-2021TMD01705

PATIENT
  Age: 58 Year
  Sex: Female
  Weight: 77.1 kg

DRUGS (6)
  1. VITAMIN C [Concomitant]
     Active Substance: ASCORBIC ACID
  2. VITAMIN B12 [Concomitant]
     Active Substance: CYANOCOBALAMIN
  3. BIJUVA [Suspect]
     Active Substance: ESTRADIOL\PROGESTERONE
     Indication: MENOPAUSE
     Dosage: 1 CAPSULE, 1X/DAY
     Route: 048
     Dates: start: 202104
  4. VITAMIN D [Concomitant]
     Active Substance: VITAMIN D NOS
  5. SINGULAIR [Concomitant]
     Active Substance: MONTELUKAST SODIUM
  6. ALLEGRA [Concomitant]
     Active Substance: FEXOFENADINE HYDROCHLORIDE

REACTIONS (3)
  - Hot flush [Recovered/Resolved]
  - Nausea [Recovered/Resolved]
  - Headache [Not Recovered/Not Resolved]

NARRATIVE: CASE EVENT DATE: 202104
